FAERS Safety Report 9183449 (Version 1)
Quarter: 2013Q1

REPORT INFORMATION
  Report Type: Spontaneous
  Country: US (occurrence: US)
  Receive Date: 20130322
  Receipt Date: 20130322
  Transmission Date: 20140127
  Serious: Yes (Hospitalization)
  Sender: FDA-Public Use
  Company Number: US-BRISTOL-MYERS SQUIBB COMPANY-17315904

PATIENT
  Age: 72 Year
  Sex: Male
  Weight: 65.76 kg

DRUGS (1)
  1. ERBITUX [Suspect]
     Dosage: 2ND DOSE ON:14JAN2013
     Dates: start: 20130107

REACTIONS (3)
  - Rash [Unknown]
  - Weight decreased [Unknown]
  - Asthenia [Unknown]
